FAERS Safety Report 5029415-8 (Version None)
Quarter: 2006Q2

REPORT INFORMATION
  Report Type: 
  Country: None (occurrence: None)
  Receive Date: 20060613
  Receipt Date: 20060601
  Transmission Date: 20061013
  Serious: Yes (Hospitalization, Other)
  Sender: FDA-Public Use
  Company Number: 2006070730

PATIENT
  Age: 55 Year
  Sex: Female

DRUGS (5)
  1. CELEBREX [Suspect]
     Indication: PAIN
     Dosage: (AS NECESSARY), ORAL
     Route: 048
     Dates: start: 20050101, end: 20060515
  2. AULIN (NIMESULIDE) [Suspect]
     Indication: PAIN
     Dosage: (AS NECESSARY), ORAL
     Route: 048
     Dates: start: 20050101, end: 20060515
  3. NAPROXEN [Suspect]
     Indication: PAIN
     Dosage: (AS NECESSARY), ORAL
     Route: 048
     Dates: start: 20050101, end: 20060515
  4. RANIDIL (RANITIDINE HYDROCHLORIDE) [Concomitant]
  5. LORAZEPAM [Concomitant]

REACTIONS (5)
  - CONTUSION [None]
  - DUODENAL ULCER HAEMORRHAGE [None]
  - INJURY [None]
  - PROCTALGIA [None]
  - SYNCOPE [None]
